FAERS Safety Report 8836832 (Version 1)
Quarter: 2012Q4

REPORT INFORMATION
  Report Type: 
  Country: US (occurrence: US)
  Receive Date: 20121012
  Receipt Date: 20121012
  Transmission Date: 20130627
  Serious: No
  Sender: FDA-Public Use
  Company Number: US-BIOGENIDEC-2012BI043039

PATIENT
  Sex: Female

DRUGS (2)
  1. AVONEX [Suspect]
     Indication: MULTIPLE SCLEROSIS
     Route: 030
     Dates: start: 20060625, end: 201208
  2. FENTANYL [Concomitant]
     Indication: BACK PAIN

REACTIONS (2)
  - Back pain [Not Recovered/Not Resolved]
  - Intervertebral disc disorder [Unknown]
